FAERS Safety Report 8880777 (Version 1)
Quarter: 2012Q4

REPORT INFORMATION
  Report Type: 
  Country: US (occurrence: US)
  Receive Date: 20121101
  Receipt Date: 20121101
  Transmission Date: 20130627
  Serious: Yes (Hospitalization)
  Sender: FDA-Public Use
  Company Number: US-BAXTER-2012BAX021229

PATIENT
  Sex: Male

DRUGS (2)
  1. DIANEAL LOW CALCIUM [Suspect]
     Indication: PERITONEAL DIALYSIS
     Dosage: 14000ML
     Route: 033
  2. DIANEAL LOW CALCIUM [Suspect]
     Dosage: 2000ML
     Route: 033

REACTIONS (1)
  - Cerebral hygroma [Unknown]
